FAERS Safety Report 15487855 (Version 1)
Quarter: 2018Q4

REPORT INFORMATION
  Report Type: Spontaneous
  Country: US (occurrence: US)
  Receive Date: 20181011
  Receipt Date: 20181011
  Transmission Date: 20190205
  Serious: No
  Sender: FDA-Public Use
  Company Number: US-PFIZER INC-2018403019

PATIENT
  Age: 90 Year
  Sex: Female
  Weight: 73.48 kg

DRUGS (2)
  1. LYRICA [Suspect]
     Active Substance: PREGABALIN
     Indication: NEUROPATHY PERIPHERAL
     Dosage: 50 MG, 2X/DAY
     Route: 048
     Dates: start: 201805
  2. LYRICA [Suspect]
     Active Substance: PREGABALIN
     Indication: BURNING SENSATION

REACTIONS (4)
  - Muscle spasms [Not Recovered/Not Resolved]
  - Gait disturbance [Unknown]
  - Arthralgia [Not Recovered/Not Resolved]
  - Arthritis [Unknown]

NARRATIVE: CASE EVENT DATE: 201807
